FAERS Safety Report 11335222 (Version 1)
Quarter: 2015Q3

REPORT INFORMATION
  Report Type: Spontaneous
  Country: US (occurrence: None)
  Receive Date: 20150731
  Receipt Date: 20150731
  Transmission Date: 20151125
  Serious: Yes (Hospitalization)
  Sender: FDA-Public Use
  Company Number: None

PATIENT
  Age: 56 Year
  Sex: Female

DRUGS (1)
  1. FINGOLIMOD [Suspect]
     Active Substance: FINGOLIMOD
     Indication: MULTIPLE SCLEROSIS
     Route: 048
     Dates: end: 20140621

REACTIONS (5)
  - Abdominal pain [None]
  - Pyrexia [None]
  - Alanine aminotransferase increased [None]
  - Headache [None]
  - Blood bilirubin increased [None]

NARRATIVE: CASE EVENT DATE: 20140621
